FAERS Safety Report 5192685-X (Version None)
Quarter: 2006Q4

REPORT INFORMATION
  Report Type: 
  Country: None (occurrence: None)
  Receive Date: 20061220
  Receipt Date: 20061207
  Transmission Date: 20070319
  Serious: Yes (Other)
  Sender: FDA-Public Use
  Company Number: 15347

PATIENT
  Sex: Female

DRUGS (2)
  1. METHOTREXATE [Suspect]
  2. HYDROCORTISONE [Suspect]

REACTIONS (2)
  - EYE INFECTION [None]
  - HYPERSENSITIVITY [None]
